FAERS Safety Report 10901864 (Version 1)
Quarter: 2015Q1

REPORT INFORMATION
  Report Type: Spontaneous
  Country: US (occurrence: None)
  Receive Date: 20150303
  Receipt Date: 20150303
  Transmission Date: 20150721
  Serious: Yes (Disabling)
  Sender: FDA-Public Use
  Company Number: None

PATIENT
  Age: 63 Year
  Sex: Female
  Weight: 65.77 kg

DRUGS (1)
  1. ALPRAZOLAM. [Suspect]
     Active Substance: ALPRAZOLAM
     Indication: ANXIETY
     Dosage: 1
     Route: 048
     Dates: start: 20140905, end: 20140922

REACTIONS (8)
  - Insomnia [None]
  - Hypersensitivity [None]
  - Drug withdrawal syndrome [None]
  - Tremor [None]
  - Panic attack [None]
  - Vision blurred [None]
  - Nervous system disorder [None]
  - Drug dependence [None]

NARRATIVE: CASE EVENT DATE: 20140905
